FAERS Safety Report 8328674-3 (Version None)
Quarter: 2012Q2

REPORT INFORMATION
  Report Type: 
  Country: None (occurrence: None)
  Receive Date: 20120502
  Receipt Date: 20120426
  Transmission Date: 20120825
  Serious: Yes (Hospitalization)
  Sender: FDA-Public Use
  Company Number: CH-SANOFI-AVENTIS-2012SA029660

PATIENT
  Age: 84 Year
  Sex: Male
  Weight: 84 kg

DRUGS (10)
  1. ATENOLOL AND CHLORTHALIDONE [Interacting]
     Indication: PROPHYLAXIS
     Route: 048
     Dates: start: 20090901, end: 20111101
  2. ATORVASTATIN CALCIUM [Concomitant]
     Route: 048
     Dates: start: 20090322
  3. DABIGATRAN [Suspect]
     Indication: PROPHYLAXIS
     Route: 048
     Dates: start: 20111125
  4. MARCUMAR [Suspect]
     Indication: PROPHYLAXIS
     Route: 048
     Dates: start: 20090801, end: 20090901
  5. ASPIRIN [Interacting]
     Indication: PROPHYLAXIS
     Route: 048
     Dates: start: 20090901, end: 20111101
  6. NEBIVOLOL HCL [Concomitant]
     Route: 048
     Dates: start: 20090322
  7. VALSARTAN [Concomitant]
     Route: 048
     Dates: start: 20090322
  8. AMLODIPINE [Concomitant]
     Route: 048
     Dates: start: 20090322
  9. INSULIN DETEMIR [Concomitant]
     Route: 058
  10. NOVORAPID [Concomitant]

REACTIONS (9)
  - CHOLECYSTITIS [None]
  - MUSCLE HAEMORRHAGE [None]
  - PERIPHERAL NERVE INJURY [None]
  - GASTROINTESTINAL HAEMORRHAGE [None]
  - HAEMORRHAGIC ANAEMIA [None]
  - PEPTIC ULCER HAEMORRHAGE [None]
  - CHOLELITHIASIS [None]
  - DRUG INTERACTION [None]
  - MELAENA [None]
